FAERS Safety Report 4851160-X (Version None)
Quarter: 2005Q4

REPORT INFORMATION
  Report Type: 
  Country: None (occurrence: None)
  Receive Date: 20051208
  Receipt Date: 20051123
  Transmission Date: 20060501
  Serious: Yes (Death, Hospitalization, Other)
  Sender: FDA-Public Use
  Company Number: USA-2002-0003024

PATIENT
  Age: 39 Year
  Sex: Male
  Weight: 115.6 kg

DRUGS (32)
  1. OXYCONTIN [Suspect]
     Indication: PAIN
     Dosage: SEE IMAGE
     Route: 048
     Dates: start: 19971009
  2. OXYCODONE HCL [Suspect]
     Indication: PAIN
     Dosage: 5 MG, SEE TEXT, ORAL
     Route: 048
     Dates: start: 19980107, end: 19980518
  3. ETHANOL (ETHANOL) UNKNOWN [Suspect]
  4. VICODIN [Suspect]
     Indication: PAIN
     Dosage: ORAL
     Route: 048
     Dates: start: 19970101
  5. ELAVIL [Suspect]
     Dosage: 25 MG, NOCTE, ORAL
     Route: 048
     Dates: start: 19970101
  6. KLONOPIN [Suspect]
     Dosage: 0.5MG,
  7. ADVIL [Concomitant]
  8. EXTRA STRENGTH TYLENOL [Concomitant]
  9. PAXIL [Concomitant]
  10. BETACHRON (PROPRANOLOL HYDROCHLORIDE) [Concomitant]
  11. LOTREL [Concomitant]
  12. LIPITOR [Concomitant]
  13. DARVOCET-N 100 [Concomitant]
  14. XANAX [Concomitant]
  15. RELAFEN [Concomitant]
  16. DURAGESIC-100 [Concomitant]
  17. TRAZODONE HCL [Concomitant]
  18. BIAXIN [Concomitant]
  19. ZITHROMAX [Concomitant]
  20. PREDNISONE [Concomitant]
  21. ALBUTEROL [Concomitant]
  22. TYLENOL W/ CODEINE NO. 3 [Concomitant]
  23. DURACT [Concomitant]
  24. INDERAL LA [Concomitant]
  25. PROZAC [Concomitant]
  26. VANCENASE [Concomitant]
  27. ACCUPRIL [Concomitant]
  28. IMIPRAMINE [Concomitant]
  29. ZEBETA [Concomitant]
  30. AMBIEN [Concomitant]
  31. PROPRANOLO (PROPRANOLOL) [Concomitant]
  32. DURICEF [Concomitant]

REACTIONS (47)
  - ABDOMINAL PAIN [None]
  - AGITATION [None]
  - ANAEMIA [None]
  - ASTHENIA [None]
  - BACK PAIN [None]
  - BLOOD PRESSURE INCREASED [None]
  - CELLULITIS [None]
  - CHEST PAIN [None]
  - CLOSED HEAD INJURY [None]
  - CONDITION AGGRAVATED [None]
  - DEPRESSION [None]
  - DRUG ABUSER [None]
  - DRUG DEPENDENCE [None]
  - DRUG INEFFECTIVE [None]
  - DRUG TOLERANCE INCREASED [None]
  - DRUG WITHDRAWAL SYNDROME [None]
  - DYSAESTHESIA [None]
  - EPICONDYLITIS [None]
  - FACIAL BONES FRACTURE [None]
  - FALL [None]
  - FLUSHING [None]
  - FOOT FRACTURE [None]
  - GASTRITIS [None]
  - HAEMATOMA [None]
  - HOT FLUSH [None]
  - INCOHERENT [None]
  - INFLUENZA LIKE ILLNESS [None]
  - INSOMNIA [None]
  - INTENTIONAL DRUG MISUSE [None]
  - JOINT INJURY [None]
  - MALAISE [None]
  - MULTIPLE DRUG OVERDOSE ACCIDENTAL [None]
  - MUSCLE SPASMS [None]
  - PALPITATIONS [None]
  - PANIC ATTACK [None]
  - PERSONALITY DISORDER [None]
  - PILOERECTION [None]
  - PSYCHOTIC DISORDER [None]
  - PYREXIA [None]
  - RHINITIS [None]
  - ROAD TRAFFIC ACCIDENT [None]
  - SHOULDER PAIN [None]
  - TACHYCARDIA [None]
  - UPPER RESPIRATORY TRACT INFECTION [None]
  - VISION BLURRED [None]
  - WEIGHT DECREASED [None]
  - WEIGHT INCREASED [None]
